FAERS Safety Report 10606659 (Version 1)
Quarter: 2014Q4

REPORT INFORMATION
  Report Type: Spontaneous
  Country: US (occurrence: None)
  Receive Date: 20141124
  Receipt Date: 20141124
  Transmission Date: 20150529
  Serious: No
  Sender: FDA-Public Use
  Company Number: None

PATIENT
  Age: 61 Year
  Sex: Male
  Weight: 81.65 kg

DRUGS (1)
  1. VALSARTAN. [Suspect]
     Active Substance: VALSARTAN
     Indication: BLOOD PRESSURE
     Dosage: 1 PILL, ONCE DAILY, TAKEN BY MOUTH
     Route: 048
     Dates: start: 20140924, end: 20141025

REACTIONS (3)
  - Diarrhoea [None]
  - Product substitution issue [None]
  - Weight decreased [None]

NARRATIVE: CASE EVENT DATE: 20141025
